FAERS Safety Report 7327651-9 (Version None)
Quarter: 2011Q1

REPORT INFORMATION
  Report Type: 
  Country: None (occurrence: None)
  Receive Date: 20110303
  Receipt Date: 20100901
  Transmission Date: 20110831
  Serious: Yes (Other)
  Sender: FDA-Public Use
  Company Number: US-BAYER-201012996NA

PATIENT
  Sex: Female
  Weight: 119 kg

DRUGS (17)
  1. YAZ [Suspect]
     Indication: MENTAL DISORDER
     Route: 048
     Dates: start: 20050101, end: 20090101
  2. ZOLPIDEM [Concomitant]
  3. NAPROXEN [Concomitant]
  4. LACTOBACILLUS ACIDOPHILUS [Concomitant]
  5. YAZ [Suspect]
     Indication: ORAL CONTRACEPTION
  6. ACTOPLUS MET [Concomitant]
  7. CITALOPRAM HYDROBROMIDE [Concomitant]
  8. METFORMIN [Concomitant]
  9. GLUCOPHAGE [Concomitant]
  10. CLINDAMYCIN [Concomitant]
  11. CLOTRIMAZOL [Concomitant]
  12. CIPROFLOXACIN [Concomitant]
  13. SULFAMETHOXAZOLE AND TRIMETHOPRIM [Concomitant]
  14. TERCONAZOLE [Concomitant]
  15. FLUCONAZOLE [Concomitant]
  16. PHENAZOPYRIDINE HCL TAB [Concomitant]
  17. MINOCYCLINE HCL [Concomitant]

REACTIONS (8)
  - MENTAL DISORDER [None]
  - NAUSEA [None]
  - VOMITING [None]
  - ABDOMINAL PAIN UPPER [None]
  - DIARRHOEA [None]
  - GALLBLADDER CHOLESTEROLOSIS [None]
  - ABDOMINAL DISTENSION [None]
  - CHOLECYSTITIS CHRONIC [None]
